FAERS Safety Report 10256931 (Version 1)
Quarter: 2014Q2

REPORT INFORMATION
  Report Type: Report from Study
  Country: US (occurrence: US)
  Receive Date: 20140625
  Receipt Date: 20140625
  Transmission Date: 20141212
  Serious: Yes (Hospitalization)
  Sender: FDA-Public Use
  Company Number: US-ROCHE-1422892

PATIENT
  Sex: Female
  Weight: 102.36 kg

DRUGS (13)
  1. XOLAIR [Suspect]
     Indication: ASTHMA
     Dosage: DATE OF LAST DOSE: 14/JAN/2014
     Route: 058
     Dates: start: 20120118
  2. XOLAIR [Suspect]
     Indication: SEASONAL ALLERGY
     Route: 065
     Dates: start: 20130201
  3. XOLAIR [Suspect]
     Route: 065
     Dates: start: 2005, end: 2007
  4. ALBUTEROL [Concomitant]
     Route: 065
  5. ADVAIR [Concomitant]
     Dosage: 500/50
     Route: 065
  6. ADVAIR [Concomitant]
     Dosage: 250/50
     Route: 065
  7. ZYRTEC [Concomitant]
     Route: 065
  8. ZADITOR [Concomitant]
  9. SINGULAIR [Concomitant]
     Route: 048
  10. PREDNISONE [Concomitant]
     Route: 048
  11. SPIRIVA [Concomitant]
  12. PRILOSEC [Concomitant]
  13. ZYFLO CR [Concomitant]

REACTIONS (19)
  - Asthma [Unknown]
  - Sneezing [Unknown]
  - Pruritus [Unknown]
  - Rhinorrhoea [Unknown]
  - Eye pruritus [Unknown]
  - Nasal congestion [Unknown]
  - Cough [Unknown]
  - Nasal oedema [Unknown]
  - Respiratory disorder [Unknown]
  - Conjunctivitis allergic [Unknown]
  - Sinus headache [Unknown]
  - Sinusitis [Unknown]
  - Chest pain [Unknown]
  - Dysgeusia [Unknown]
  - Pharyngeal erythema [Unknown]
  - Hypersensitivity [Unknown]
  - Fatigue [Unknown]
  - Upper respiratory tract infection [Unknown]
  - Throat irritation [Unknown]
